FAERS Safety Report 21493150 (Version 2)
Quarter: 2022Q4

REPORT INFORMATION
  Report Type: Spontaneous
  Country: JP (occurrence: JP)
  Receive Date: 20221021
  Receipt Date: 20221208
  Transmission Date: 20230112
  Serious: Yes (Death, Hospitalization, Other)
  Sender: FDA-Public Use
  Company Number: JP-ONO-2022JP028373

PATIENT
  Age: 6 Decade
  Sex: Male

DRUGS (4)
  1. OPDIVO [Suspect]
     Active Substance: NIVOLUMAB
     Indication: Oesophageal carcinoma
     Dosage: UNK
     Route: 041
     Dates: start: 20200517
  2. CISPLATIN [Concomitant]
     Active Substance: CISPLATIN
     Indication: Product used for unknown indication
     Dosage: UNK
     Route: 065
  3. FLUOROURACIL [Concomitant]
     Active Substance: FLUOROURACIL
     Indication: Product used for unknown indication
     Dosage: UNK
     Route: 065
  4. DOCETAXEL [Concomitant]
     Active Substance: DOCETAXEL
     Indication: Product used for unknown indication
     Dosage: UNK
     Route: 065

REACTIONS (3)
  - Adrenocorticotropic hormone deficiency [Recovered/Resolved]
  - Hepatitis fulminant [Recovered/Resolved]
  - Malignant neoplasm progression [Fatal]

NARRATIVE: CASE EVENT DATE: 20201027
